FAERS Safety Report 6642909-4 (Version None)
Quarter: 2010Q1

REPORT INFORMATION
  Report Type: 
  Country: None (occurrence: None)
  Receive Date: 20100319
  Receipt Date: 20100304
  Transmission Date: 20100710
  Serious: Yes (Other)
  Sender: FDA-Public Use
  Company Number: GB-JNJFOC-20100302946

PATIENT
  Sex: Female

DRUGS (2)
  1. GALANTAMINE HYDROBROMIDE [Suspect]
     Indication: DRUG USE FOR UNKNOWN INDICATION
     Route: 065
  2. GALANTAMINE HYDROBROMIDE [Suspect]
     Route: 065

REACTIONS (6)
  - ACCIDENTAL OVERDOSE [None]
  - AGGRESSION [None]
  - AGITATION [None]
  - DECREASED APPETITE [None]
  - MALAISE [None]
  - SOCIAL AVOIDANT BEHAVIOUR [None]
